FAERS Safety Report 21397120 (Version 1)
Quarter: 2022Q3

REPORT INFORMATION
  Report Type: Spontaneous
  Country: US (occurrence: None)
  Receive Date: 20220929
  Receipt Date: 20220929
  Transmission Date: 20221027
  Serious: Yes (Hospitalization)
  Sender: FDA-Public Use
  Company Number: None

PATIENT
  Sex: Male

DRUGS (1)
  1. RYDAPT [Suspect]
     Active Substance: MIDOSTAURIN
     Indication: Acute myeloid leukaemia
     Dosage: TAKE 2 CAPSULES BY MOUTH TWICE DAILY ON WEEK 2 AND 3 DURING CONSOLIDATION CHEMO?
     Route: 048
     Dates: start: 20220901

REACTIONS (2)
  - Hospitalisation [None]
  - Therapy interrupted [None]
